FAERS Safety Report 13764387 (Version 2)
Quarter: 2018Q2

REPORT INFORMATION
  Report Type: Spontaneous
  Country: US (occurrence: US)
  Receive Date: 20170718
  Receipt Date: 20180517
  Transmission Date: 20180711
  Serious: Yes (Hospitalization, Other)
  Sender: FDA-Public Use
  Company Number: US-SA-2017SA128462

PATIENT
  Age: 76 Year
  Sex: Male

DRUGS (10)
  1. PLAVIX [Suspect]
     Active Substance: CLOPIDOGREL BISULFATE
     Route: 048
  2. REPATHA [Suspect]
     Active Substance: EVOLOCUMAB
     Indication: ARTERIOSCLEROSIS
     Dosage: EVERY 2 WEEKS
     Route: 065
     Dates: start: 201610
  3. AMLODIPINE [Concomitant]
     Active Substance: AMLODIPINE BESYLATE
  4. COREG [Concomitant]
     Active Substance: CARVEDILOL
  5. SALBUTAMOL SULFATE/IPRATROPIUM BROMIDE [Concomitant]
  6. PROVENTIL [Concomitant]
     Active Substance: ALBUTEROL
  7. PLAVIX [Suspect]
     Active Substance: CLOPIDOGREL BISULFATE
     Route: 048
     Dates: start: 201703
  8. LISINOPRIL. [Concomitant]
     Active Substance: LISINOPRIL
  9. CALCIUM WITH VITAMIN D [Concomitant]
     Active Substance: CALCIUM\VITAMIN D
  10. ASPIRIN. [Concomitant]
     Active Substance: ASPIRIN

REACTIONS (24)
  - Fatigue [Unknown]
  - High density lipoprotein increased [Recovered/Resolved]
  - White blood cell count decreased [Not Recovered/Not Resolved]
  - Pruritus [Unknown]
  - Head injury [Unknown]
  - Mean cell haemoglobin concentration abnormal [Recovered/Resolved]
  - Heart rate irregular [Recovered/Resolved]
  - Pulse abnormal [Unknown]
  - Lung disorder [Unknown]
  - Haemorrhage [Recovered/Resolved]
  - Arthralgia [Recovering/Resolving]
  - Lung infection [Recovered/Resolved]
  - Blood iron decreased [Recovered/Resolved]
  - Platelet count decreased [Recovered/Resolved]
  - Haemoglobin abnormal [Recovered/Resolved]
  - Haemorrhagic disorder [Recovered/Resolved]
  - Myalgia [Recovering/Resolving]
  - Blood cholesterol decreased [Not Recovered/Not Resolved]
  - Contusion [Recovered/Resolved]
  - Mean cell volume abnormal [Recovered/Resolved]
  - Laboratory test abnormal [Recovered/Resolved]
  - Rotator cuff syndrome [Unknown]
  - Red cell distribution width abnormal [Recovered/Resolved]
  - Fall [Unknown]

NARRATIVE: CASE EVENT DATE: 201612
